FAERS Safety Report 4537104-9 (Version None)
Quarter: 2004Q4

REPORT INFORMATION
  Report Type: 
  Country: None (occurrence: None)
  Receive Date: 20041221
  Receipt Date: 20041209
  Transmission Date: 20050328
  Serious: Yes (Other)
  Sender: FDA-Public Use
  Company Number: HQWYE891510DEC04

PATIENT
  Sex: Female

DRUGS (1)
  1. EFFEXOR XR [Suspect]
     Dosage: 37.5 MG 1X PER 1 DAY, ORAL
     Route: 048
     Dates: start: 20020101

REACTIONS (4)
  - BALANCE DISORDER [None]
  - CONFUSIONAL STATE [None]
  - FALL [None]
  - HIP FRACTURE [None]
